FAERS Safety Report 25785148 (Version 1)
Quarter: 2025Q3

REPORT INFORMATION
  Report Type: Report from Study
  Country: CA (occurrence: CA)
  Receive Date: 20250910
  Receipt Date: 20250910
  Transmission Date: 20251020
  Serious: Yes (Other)
  Sender: ABBVIE
  Company Number: CA-ABBVIE-6450311

PATIENT
  Sex: Male

DRUGS (1)
  1. LUPRON [Suspect]
     Active Substance: LEUPROLIDE ACETATE
     Indication: Prostate cancer
     Dosage: FORM STRENGTH: 22.5 MILLIGRAM, DOSE FORM :POWDER AND SOLVENT FOR SUSPENSION FOR INJECTION IN PRE-...
     Route: 065
     Dates: start: 20170126

REACTIONS (4)
  - Metastatic lymphoma [Unknown]
  - Skin discolouration [Unknown]
  - Prostatic specific antigen increased [Unknown]
  - Blood iron decreased [Unknown]
